FAERS Safety Report 6153675-3 (Version None)
Quarter: 2009Q2

REPORT INFORMATION
  Report Type: 
  Country: None (occurrence: None)
  Receive Date: 20090413
  Receipt Date: 20090408
  Transmission Date: 20091009
  Serious: Yes (Death)
  Sender: FDA-Public Use
  Company Number: GR-ABBOTT-09P-066-0567010-00

PATIENT
  Age: 60 Year
  Sex: Male
  Weight: 112 kg

DRUGS (11)
  1. ZEMPLAR [Suspect]
     Indication: HYPERPARATHYROIDISM SECONDARY
     Route: 042
     Dates: start: 20071206
  2. SALOSPIR [Concomitant]
     Indication: ANTICOAGULANT THERAPY
     Route: 048
     Dates: start: 20071101
  3. PLAVIX [Concomitant]
     Indication: ANTICOAGULANT THERAPY
     Route: 048
     Dates: start: 20071101
  4. LEPUR [Concomitant]
     Indication: DYSLIPIDAEMIA
     Route: 048
  5. LOPRESOR [Concomitant]
     Indication: HYPERTENSION
     Dosage: 1/4 TAB TWICE DAILY
     Route: 048
     Dates: start: 19850101
  6. TRIATEC [Concomitant]
     Indication: HYPERTENSION
     Route: 048
     Dates: start: 19850101
  7. MONOSORDIL [Concomitant]
     Indication: CORONARY ARTERY DISEASE
     Dosage: 1/2 TAB TWICE DAILY
     Route: 048
  8. SOLUVIT AMP [Concomitant]
     Indication: VITAMIN SUPPLEMENTATION
     Dosage: 1 AMP/HEMODIALYSIS
     Route: 042
     Dates: start: 20071101
  9. SUPERAMIN AMP [Concomitant]
     Indication: VITAMIN SUPPLEMENTATION
     Dosage: 1 AMP/HEMODIALYSIS
     Route: 042
     Dates: start: 20071101
  10. MIRCERA [Concomitant]
     Indication: ANAEMIA
     Route: 042
     Dates: start: 20080101
  11. RENAGEL [Concomitant]
     Indication: HYPERPHOSPHATAEMIA
     Dates: start: 20070101

REACTIONS (1)
  - ACUTE MYOCARDIAL INFARCTION [None]
